FAERS Safety Report 9370096 (Version 1)
Quarter: 2013Q2

REPORT INFORMATION
  Report Type: Spontaneous
  Country: US (occurrence: US)
  Receive Date: 20130626
  Receipt Date: 20130626
  Transmission Date: 20140414
  Serious: Yes (Other)
  Sender: FDA-Public Use
  Company Number: CHPA2013US010173

PATIENT
  Age: 70 Year
  Sex: Female

DRUGS (4)
  1. EXCEDRIN TENSION HEADACHE [Suspect]
     Indication: HEADACHE
     Dosage: UNK, UNK
     Route: 048
  2. EXCEDRIN UNKNOWN [Suspect]
     Indication: HEADACHE
     Dosage: UNK, UNK
     Route: 048
  3. VITAMIN D [Concomitant]
     Dosage: UNK, UNK
  4. CALCIUM [Concomitant]
     Dosage: UNK, UNK

REACTIONS (3)
  - Nephrolithiasis [Recovered/Resolved]
  - Oropharyngeal pain [Recovering/Resolving]
  - Headache [Unknown]
